FAERS Safety Report 5196885-4 (Version None)
Quarter: 2006Q4

REPORT INFORMATION
  Report Type: 
  Country: None (occurrence: None)
  Receive Date: 20061227
  Receipt Date: 20061218
  Transmission Date: 20070319
  Serious: Yes (Other)
  Sender: FDA-Public Use
  Company Number: 233722

PATIENT
  Sex: Male

DRUGS (1)
  1. ACTIVASE [Suspect]
     Indication: ISCHAEMIC STROKE
     Dosage: 70 MG SINGLE INTRAVENOUS
     Route: 042
     Dates: start: 20061208, end: 20061208

REACTIONS (1)
  - DRUG INEFFECTIVE [None]
